FAERS Safety Report 8431931 (Version 4)
Quarter: 2012Q4

REPORT INFORMATION
  Report Type: 
  Country: US (occurrence: US)
  Receive Date: 20120229
  Receipt Date: 20120903
  Transmission Date: 20130627
  Serious: Yes (Hospitalization)
  Sender: FDA-Public Use
  Company Number: US-BAYER-2012-017445

PATIENT
  Age: 37 Year
  Sex: Female
  Weight: 66.67 kg

DRUGS (13)
  1. YAZ [Suspect]
     Indication: ACNE
     Dosage: UNK
     Route: 048
     Dates: start: 20060802, end: 200612
  2. YAZ [Suspect]
     Indication: MENORRHAGIA
  3. YAZ [Suspect]
     Indication: MENSTRUAL CYCLE MANAGEMENT
  4. TORADOL [Concomitant]
     Indication: HEADACHE
     Dosage: 30 mg, UNK
     Route: 042
     Dates: start: 20061228
  5. ANZAMET [Concomitant]
     Indication: NAUSEA
     Dosage: 12.5 mg, UNK
     Route: 042
     Dates: start: 20061228
  6. ANTIVERT [MECLOZINE HYDROCHLORIDE] [Concomitant]
     Indication: DIZZINESS
     Dosage: 25 mg, UNK
     Route: 048
     Dates: start: 20061228
  7. PHENERGAN [Concomitant]
     Indication: NAUSEA
     Dosage: 25 mg, UNK
     Route: 048
     Dates: start: 20061228
  8. MOTRIN [Concomitant]
     Indication: HEADACHE
  9. MOTRIN [Concomitant]
     Indication: PAIN
  10. ALEVE [Concomitant]
     Indication: PAIN
  11. MULTIVITAMINS [Concomitant]
  12. ZOCOR [Concomitant]
  13. VALIUM [Concomitant]

REACTIONS (2)
  - Cerebrovascular accident [None]
  - Pain [None]
